FAERS Safety Report 8086463-1 (Version None)
Quarter: 2012Q1

REPORT INFORMATION
  Report Type: 
  Country: None (occurrence: None)
  Receive Date: 20120128
  Receipt Date: 20110506
  Transmission Date: 20120608
  Serious: No
  Sender: FDA-Public Use
  Company Number: US-ABBOTT-11P-163-0723947-00

PATIENT
  Sex: Female

DRUGS (16)
  1. COUMADIN [Concomitant]
     Indication: CARDIAC VALVE DISEASE
  2. SULFASALAZINE [Concomitant]
     Indication: RHEUMATOID ARTHRITIS
  3. VITAMIN D [Concomitant]
     Indication: VITAMIN SUPPLEMENTATION
  4. ASPIRIN [Concomitant]
     Indication: CARDIAC DISORDER
  5. SPIRONOLACTONE [Concomitant]
     Indication: CARDIAC DISORDER
  6. TOPROL-XL [Concomitant]
     Indication: CARDIAC DISORDER
  7. HUMIRA [Suspect]
     Indication: ANKYLOSING SPONDYLITIS
  8. COUMADIN [Concomitant]
     Indication: ATRIAL FIBRILLATION
  9. LANOXIN [Concomitant]
     Indication: CARDIAC DISORDER
  10. HYDROCHLOROTHIAZIDE [Concomitant]
     Indication: CARDIAC DISORDER
  11. AMBIEN [Concomitant]
     Indication: INSOMNIA
  12. NOCOR [Concomitant]
     Indication: PAIN
  13. COZAAR [Concomitant]
     Indication: CARDIAC DISORDER
  14. PRAVASTATIN [Concomitant]
     Indication: BLOOD CHOLESTEROL INCREASED
  15. METFFORMIN HYDROCHLORIDE [Concomitant]
     Indication: DIABETES MELLITUS
  16. HUMIRA [Suspect]
     Indication: RHEUMATOID ARTHRITIS
     Route: 058
     Dates: start: 20110402

REACTIONS (2)
  - HEADACHE [None]
  - WEIGHT INCREASED [None]
